FAERS Safety Report 6970926-3 (Version None)
Quarter: 2010Q3

REPORT INFORMATION
  Report Type: 
  Country: None (occurrence: None)
  Receive Date: 20100908
  Receipt Date: 20100827
  Transmission Date: 20110219
  Serious: Yes (Hospitalization, Other)
  Sender: FDA-Public Use
  Company Number: JP-PFIZER INC-2010104176

PATIENT

DRUGS (7)
  1. SALAZOPYRIN [Suspect]
     Indication: COLITIS ULCERATIVE
     Dosage: 3000 MG/DAY
     Route: 048
     Dates: start: 20100806, end: 20100818
  2. ASACOL [Concomitant]
     Dosage: 3600 MG/DAY
     Route: 048
  3. ACINON [Concomitant]
     Dosage: 2 DF/DAY
     Route: 048
  4. PREDNISOLONE [Concomitant]
     Dosage: 3 MG/DAY
     Route: 048
  5. ONE-ALPHA [Concomitant]
     Dosage: 0.5 UG/DAY
     Route: 048
  6. RULID [Concomitant]
     Dosage: 300 MG/DAY
     Route: 048
  7. FLAVITAN [Concomitant]
     Dosage: 30 MG/DAY
     Route: 048

REACTIONS (2)
  - DRUG ERUPTION [None]
  - INFECTIOUS MONONUCLEOSIS [None]
